FAERS Safety Report 7615650-9 (Version None)
Quarter: 2011Q3

REPORT INFORMATION
  Report Type: 
  Country: None (occurrence: None)
  Receive Date: 20110711
  Receipt Date: 20110627
  Transmission Date: 20111222
  Serious: Yes (Hospitalization, Other)
  Sender: FDA-Public Use
  Company Number: 2011P1007403

PATIENT
  Age: 86 Year
  Sex: Female
  Weight: 58.0604 kg

DRUGS (4)
  1. METRONIDAZOLE [Suspect]
  2. UNSPECIFIED MEDICATION INJECTION [Concomitant]
  3. UNSPECIFIED DIABETES PILLS [Concomitant]
  4. VITAMIN TAB [Concomitant]

REACTIONS (7)
  - CEREBROVASCULAR ACCIDENT [None]
  - SOFT TISSUE INJURY [None]
  - FEELING ABNORMAL [None]
  - APHASIA [None]
  - HIP FRACTURE [None]
  - AMNESIA [None]
  - PRODUCT SUBSTITUTION ISSUE [None]
